FAERS Safety Report 16368648 (Version 3)
Quarter: 2024Q2

REPORT INFORMATION
  Report Type: Spontaneous
  Country: US (occurrence: None)
  Receive Date: 20190529
  Receipt Date: 20240522
  Transmission Date: 20240716
  Serious: No
  Sender: FDA-Public Use
  Company Number: 2008BM10306

PATIENT
  Age: 56 Year
  Sex: Male

DRUGS (7)
  1. BYETTA [Suspect]
     Active Substance: EXENATIDE
     Indication: Type 2 diabetes mellitus
     Dosage: 5 ?G, BID
     Route: 058
     Dates: start: 2007, end: 2007
  2. BYETTA [Suspect]
     Active Substance: EXENATIDE
     Indication: Type 2 diabetes mellitus
     Dosage: 10 ?G, BID
     Route: 058
     Dates: start: 2007
  3. BYDUREON BCISE [Suspect]
     Active Substance: EXENATIDE
     Dosage: UNKNOWN
     Route: 058
  4. EXENATIDE [Concomitant]
     Active Substance: EXENATIDE
  5. EXENATIDE [Concomitant]
     Active Substance: EXENATIDE
  6. EXENATIDE [Concomitant]
     Active Substance: EXENATIDE
  7. PLAVIX [Concomitant]
     Active Substance: CLOPIDOGREL BISULFATE
     Dosage: UNK

REACTIONS (2)
  - Somnolence [Recovered/Resolved]
  - Device malfunction [Unknown]

NARRATIVE: CASE EVENT DATE: 20070101
